FAERS Safety Report 9646091 (Version 2)
Quarter: 2013Q4

REPORT INFORMATION
  Report Type: Spontaneous
  Country: US (occurrence: US)
  Receive Date: 20131025
  Receipt Date: 20131025
  Transmission Date: 20140711
  Serious: No
  Sender: FDA-Public Use
  Company Number: US-TEVA-404530USA

PATIENT
  Age: 50 Year
  Sex: Female

DRUGS (12)
  1. PACLITAXEL [Suspect]
     Indication: CHEMOTHERAPY
     Route: 042
     Dates: start: 20130402
  2. CARBOPLATIN [Concomitant]
     Indication: CHEMOTHERAPY
  3. WARFARIN [Concomitant]
  4. ZOFRAN [Concomitant]
  5. NORCO [Concomitant]
  6. COMPAZINE [Concomitant]
  7. ATIVAN [Concomitant]
  8. ATARAX [Concomitant]
  9. DECADRON [Concomitant]
  10. MEDROL [Concomitant]
     Dosage: DOSE PACK
  11. ANUSOL [Concomitant]
  12. POTASSIUM CHLORIDE [Concomitant]

REACTIONS (1)
  - Rash [Recovered/Resolved]
